FAERS Safety Report 6440220-8 (Version None)
Quarter: 2009Q4

REPORT INFORMATION
  Report Type: 
  Country: None (occurrence: None)
  Receive Date: 20091113
  Receipt Date: 20091103
  Transmission Date: 20100525
  Serious: Yes (Hospitalization, Other)
  Sender: FDA-Public Use
  Company Number: US-JNJFOC-20091007189

PATIENT
  Sex: Male
  Weight: 52.89 kg

DRUGS (9)
  1. INFLIXIMAB [Suspect]
     Indication: INFLAMMATORY BOWEL DISEASE
     Route: 042
     Dates: start: 20081222, end: 20090814
  2. ZOSYN [Suspect]
     Indication: DRUG USE FOR UNKNOWN INDICATION
  3. FLUCONAZOLE [Suspect]
     Indication: DRUG USE FOR UNKNOWN INDICATION
  4. 5-AMINOSALICYLIC ACID [Concomitant]
     Route: 048
  5. PREDNISONE [Concomitant]
  6. LEVSIN [Concomitant]
  7. MULTIPLE VITAMIN [Concomitant]
  8. SLOW FE [Concomitant]
  9. OMEPRAZOLE [Concomitant]

REACTIONS (10)
  - CANDIDIASIS [None]
  - DEHYDRATION [None]
  - ENTEROCOCCAL INFECTION [None]
  - HEPATIC ENZYME INCREASED [None]
  - LACTOBACILLUS INFECTION [None]
  - NEUTROPENIA [None]
  - OSTEOMYELITIS [None]
  - PYREXIA [None]
  - RETROPERITONEAL ABSCESS [None]
  - THROMBOCYTOPENIA [None]
